FAERS Safety Report 4871633-3 (Version None)
Quarter: 2006Q1

REPORT INFORMATION
  Report Type: 
  Country: None (occurrence: None)
  Receive Date: 20060104
  Receipt Date: 20051221
  Transmission Date: 20060701
  Serious: Yes (Other)
  Sender: FDA-Public Use
  Company Number: US-AMGEN-US162628

PATIENT
  Sex: Female
  Weight: 65.3 kg

DRUGS (6)
  1. PROCRIT [Suspect]
     Indication: ANAEMIA OF MALIGNANT DISEASE
     Route: 058
  2. IMMUNE GLOBULIN INTRAVENOUS (HUMAN) [Concomitant]
  3. RITUXAN [Concomitant]
     Dates: start: 20051221
  4. PREDNISONE 50MG TAB [Concomitant]
  5. ALEVE [Concomitant]
  6. FOSAMAX [Concomitant]

REACTIONS (1)
  - APLASIA PURE RED CELL [None]
